FAERS Safety Report 6129351-X (Version None)
Quarter: 2009Q1

REPORT INFORMATION
  Report Type: 
  Country: None (occurrence: None)
  Receive Date: 20090320
  Receipt Date: 20020206
  Transmission Date: 20090719
  Serious: Yes (Hospitalization)
  Sender: FDA-Public Use
  Company Number: 005884

PATIENT
  Age: 3 Year
  Sex: Female
  Weight: 12 kg

DRUGS (7)
  1. BUSULFEX (BUSULFEX) INJECTION [Suspect]
     Indication: BONE MARROW TRANSPLANT
     Dosage: 57.6 MG, Q6HR   INTRAVENOUS
     Route: 042
     Dates: start: 20011231, end: 20020105
  2. MELPHALAN(MELPHALAN)INJECTION [Suspect]
     Indication: BONE MARROW TRANSPLANT
     Dosage: 140 MG/M2, DAILY DOSE  INTRAVENOUS
     Route: 042
     Dates: start: 20020106, end: 20020106
  3. CEFTAZIDIME [Concomitant]
  4. ACYCLOVIR [Concomitant]
  5. TEICOPLANIN (TEICOPLANIN) [Concomitant]
  6. FENTANYL-100 [Concomitant]
  7. DESOXYCHOLIC ACID [Concomitant]

REACTIONS (4)
  - ASCITES [None]
  - HEPATOMEGALY [None]
  - VENOOCCLUSIVE LIVER DISEASE [None]
  - WEIGHT INCREASED [None]
